FAERS Safety Report 11596294 (Version 1)
Quarter: 2015Q4

REPORT INFORMATION
  Report Type: Spontaneous
  Country: CA (occurrence: CA)
  Receive Date: 20151006
  Receipt Date: 20151006
  Transmission Date: 20160304
  Serious: Yes (Hospitalization)
  Sender: FDA-Public Use
  Company Number: CA-TEVA-597847ACC

PATIENT
  Age: 51 Year
  Sex: Male
  Weight: 99 kg

DRUGS (1)
  1. ATORVASTATIN CALCIUM. [Suspect]
     Active Substance: ATORVASTATIN CALCIUM
     Indication: LIPIDS INCREASED
     Route: 048

REACTIONS (7)
  - Blood glucose increased [Unknown]
  - Confusional state [Unknown]
  - Blood ketone body increased [Unknown]
  - Diabetic ketoacidosis [Unknown]
  - Ketonuria [Unknown]
  - Polydipsia [Unknown]
  - Polyuria [Unknown]
